FAERS Safety Report 4731744-X (Version None)
Quarter: 2005Q3

REPORT INFORMATION
  Report Type: 
  Country: None (occurrence: None)
  Receive Date: 20050725
  Receipt Date: 20041019
  Transmission Date: 20060218
  Serious: Yes (Disabling)
  Sender: FDA-Public Use
  Company Number: WAES 0306USA00637

PATIENT
  Age: 30 Year
  Sex: Female

DRUGS (7)
  1. VIOXX [Suspect]
     Indication: ARTHRALGIA
     Dosage: PO; SEE IMAGE
     Route: 048
     Dates: start: 19991221
  2. VIOXX [Suspect]
     Indication: SYNOVITIS
     Dosage: PO; SEE IMAGE
     Route: 048
     Dates: start: 19991221
  3. VIOXX [Suspect]
     Indication: ARTHRALGIA
     Dosage: PO; SEE IMAGE
     Route: 048
     Dates: start: 20010213
  4. VIOXX [Suspect]
     Indication: SYNOVITIS
     Dosage: PO; SEE IMAGE
     Route: 048
     Dates: start: 20010213
  5. VIOXX [Suspect]
     Indication: ARTHRALGIA
     Dosage: PO; SEE IMAGE
     Route: 048
     Dates: start: 20010216
  6. VIOXX [Suspect]
     Indication: SYNOVITIS
     Dosage: PO; SEE IMAGE
     Route: 048
     Dates: start: 20010216
  7. ALEVE [Concomitant]

REACTIONS (4)
  - ADVERSE EVENT [None]
  - ARTHRITIS [None]
  - BACK INJURY [None]
  - TENDONITIS [None]
